FAERS Safety Report 7627687-4 (Version None)
Quarter: 2011Q3

REPORT INFORMATION
  Report Type: 
  Country: None (occurrence: None)
  Receive Date: 20110721
  Receipt Date: 20110715
  Transmission Date: 20111222
  Serious: Yes (Other)
  Sender: FDA-Public Use
  Company Number: DE-ABBOTT-11P-062-0839937-00

PATIENT
  Sex: Female

DRUGS (6)
  1. PHENOBARBITAL TAB [Concomitant]
     Dosage: HIGH DOSES
  2. PYRIDOXINE HCL [Concomitant]
     Indication: CONVULSION
  3. PHENOBARBITAL TAB [Concomitant]
     Indication: CONVULSION
  4. VALPROIC ACID [Suspect]
     Indication: PARTIAL SEIZURES
  5. VALPROIC ACID [Suspect]
     Indication: CONVULSION
  6. SULTIAME [Concomitant]
     Indication: CONVULSION

REACTIONS (1)
  - RHABDOMYOLYSIS [None]
